FAERS Safety Report 14219417 (Version 2)
Quarter: 2018Q1

REPORT INFORMATION
  Report Type: Spontaneous
  Country: US (occurrence: US)
  Receive Date: 20171123
  Receipt Date: 20180123
  Transmission Date: 20180508
  Serious: No
  Sender: FDA-Public Use
  Company Number: US-JNJFOC-20170921120

PATIENT
  Sex: Female
  Weight: 65.77 kg

DRUGS (8)
  1. FENTANYL. [Suspect]
     Active Substance: FENTANYL
     Indication: SPINAL FRACTURE
     Route: 062
     Dates: start: 2017
  2. TIZANIDINE. [Concomitant]
     Active Substance: TIZANIDINE
     Indication: MUSCLE SPASMS
     Dosage: 8 MG
     Route: 065
     Dates: start: 2017
  3. FENTANYL. [Suspect]
     Active Substance: FENTANYL
     Indication: SPINAL FRACTURE
     Dosage: STARTED 3 TO 4 YEARS AGO
     Route: 062
     Dates: end: 2017
  4. VITAMIN D3 [Concomitant]
     Active Substance: CHOLECALCIFEROL
     Route: 048
  5. HYDROXYZINE HYDROCHLORIDE. [Concomitant]
     Active Substance: HYDROXYZINE HYDROCHLORIDE
     Indication: ANXIETY
     Route: 048
  6. MIRTAZAPINE. [Concomitant]
     Active Substance: MIRTAZAPINE
     Indication: POST-TRAUMATIC STRESS DISORDER
     Route: 048
  7. OXYCODONE [Concomitant]
     Active Substance: OXYCODONE
     Indication: PAIN
     Dosage: EVERY 4 TO 6 HOURS AS NEEDED
     Route: 048
  8. ATORVASTATIN CALCIUM. [Concomitant]
     Active Substance: ATORVASTATIN CALCIUM
     Indication: HYPERCHOLESTEROLAEMIA
     Dosage: HALF 20 MG TABLET
     Route: 048

REACTIONS (11)
  - Thirst [Unknown]
  - Anxiety [Unknown]
  - Nausea [Unknown]
  - Abdominal pain upper [Unknown]
  - Hyperhidrosis [Not Recovered/Not Resolved]
  - Feeling cold [Not Recovered/Not Resolved]
  - Drug ineffective [Unknown]
  - Vomiting [Unknown]
  - Diarrhoea [Unknown]
  - Pain [Unknown]
  - Tremor [Not Recovered/Not Resolved]
